FAERS Safety Report 15258997 (Version 2)
Quarter: 2018Q4

REPORT INFORMATION
  Report Type: Spontaneous
  Country: US (occurrence: US)
  Receive Date: 20180809
  Receipt Date: 20181015
  Transmission Date: 20190204
  Serious: Yes (Other)
  Sender: FDA-Public Use
  Company Number: US-AMGEN-USASP2018107899

PATIENT
  Age: 67 Year
  Sex: Male

DRUGS (4)
  1. TAXOTERE [Concomitant]
     Active Substance: DOCETAXEL
     Indication: METASTASES TO BONE
  2. TAXOTERE [Concomitant]
     Active Substance: DOCETAXEL
     Indication: METASTASES TO LUNG
  3. NEULASTA [Suspect]
     Active Substance: PEGFILGRASTIM
     Indication: PRODUCT USED FOR UNKNOWN INDICATION
     Dosage: UNK UNK, AFTER CHEMO
     Route: 065
     Dates: start: 201805
  4. TAXOTERE [Concomitant]
     Active Substance: DOCETAXEL
     Indication: PROSTATE CANCER METASTATIC
     Dosage: UNK
     Dates: start: 201805

REACTIONS (6)
  - White blood cell count decreased [Not Recovered/Not Resolved]
  - Pneumonitis [Not Recovered/Not Resolved]
  - Red blood cell count decreased [Not Recovered/Not Resolved]
  - Pleural effusion [Unknown]
  - Pulmonary oedema [Unknown]
  - Platelet count decreased [Not Recovered/Not Resolved]

NARRATIVE: CASE EVENT DATE: 2018
